FAERS Safety Report 6736450-8 (Version None)
Quarter: 2010Q2

REPORT INFORMATION
  Report Type: 
  Country: None (occurrence: None)
  Receive Date: 20100521
  Receipt Date: 20100519
  Transmission Date: 20101027
  Serious: No
  Sender: FDA-Public Use
  Company Number: US-B.I. PHARMACEUTICALS,INC./RIDGEFIELD-2010-BP-05733BP

PATIENT
  Sex: Female

DRUGS (4)
  1. SPIRIVA [Suspect]
     Indication: CHRONIC OBSTRUCTIVE PULMONARY DISEASE
     Dosage: 18 MCG
     Route: 055
     Dates: start: 20100418
  2. LEVOXYL [Concomitant]
     Indication: GOITRE
     Dosage: 0.5 MCG
     Route: 048
  3. DICYCLOMINE [Concomitant]
     Indication: GASTRIC DISORDER
     Dosage: 10 MG
     Route: 048
  4. DOXYCYCLINE [Concomitant]
     Indication: GINGIVAL DISORDER
     Route: 048

REACTIONS (2)
  - DRY MOUTH [None]
  - INCORRECT ROUTE OF DRUG ADMINISTRATION [None]
